FAERS Safety Report 19061605 (Version 1)
Quarter: 2021Q1

REPORT INFORMATION
  Report Type: Spontaneous
  Country: US (occurrence: US)
  Receive Date: 20210325
  Receipt Date: 20210325
  Transmission Date: 20210420
  Serious: No
  Sender: FDA-Public Use
  Company Number: None

PATIENT
  Age: 58 Year
  Sex: Female
  Weight: 85.5 kg

DRUGS (6)
  1. METOPROLOL SUCCINATE 50MG [Suspect]
     Active Substance: METOPROLOL SUCCINATE
     Indication: ATRIAL FIBRILLATION
     Route: 048
     Dates: start: 20190901
  2. ELIQUIS [Concomitant]
     Active Substance: APIXABAN
  3. METHIMAZOLE. [Concomitant]
     Active Substance: METHIMAZOLE
  4. METOPROLOL SUCCINATE 50MG [Suspect]
     Active Substance: METOPROLOL SUCCINATE
     Indication: HYPERTENSION
     Route: 048
     Dates: start: 20190901
  5. VITAMIN [Concomitant]
     Active Substance: VITAMINS
  6. LISINOPRIL. [Concomitant]
     Active Substance: LISINOPRIL

REACTIONS (5)
  - Back pain [None]
  - Peripheral swelling [None]
  - Blood glucose decreased [None]
  - Muscular weakness [None]
  - Dizziness [None]
